FAERS Safety Report 25308290 (Version 4)
Quarter: 2025Q2

REPORT INFORMATION
  Report Type: Spontaneous
  Country: US (occurrence: US)
  Receive Date: 20250513
  Receipt Date: 20250521
  Transmission Date: 20250717
  Serious: No
  Sender: SANOFI AVENTIS
  Company Number: US-SA-2025SA128930

PATIENT
  Age: 29 Year
  Sex: Male
  Weight: 63.64 kg

DRUGS (1)
  1. DUPIXENT [Suspect]
     Active Substance: DUPILUMAB
     Indication: Eosinophilic oesophagitis
     Dosage: 300 MG, QW
     Route: 058
     Dates: start: 20250427

REACTIONS (16)
  - Dark circles under eyes [Unknown]
  - Pain [Unknown]
  - Skin reaction [Unknown]
  - Muscle spasms [Not Recovered/Not Resolved]
  - Dry skin [Unknown]
  - Urticaria [Recovering/Resolving]
  - Ocular hyperaemia [Unknown]
  - Pruritus [Recovering/Resolving]
  - Dry eye [Unknown]
  - Oral herpes [Unknown]
  - Eye pruritus [Unknown]
  - Rash [Unknown]
  - Arthralgia [Unknown]
  - Injection site pain [Unknown]
  - Injection site pruritus [Recovered/Resolved]
  - Injection site swelling [Recovered/Resolved]

NARRATIVE: CASE EVENT DATE: 20250101
